FAERS Safety Report 19382573 (Version 1)
Quarter: 2021Q2

REPORT INFORMATION
  Report Type: Spontaneous
  Country: HU (occurrence: HU)
  Receive Date: 20210607
  Receipt Date: 20210607
  Transmission Date: 20210717
  Serious: Yes (Other)
  Sender: FDA-Public Use
  Company Number: HU-ELI_LILLY_AND_COMPANY-HU202105012471

PATIENT
  Age: 80 Year
  Sex: Female
  Weight: 103 kg

DRUGS (2)
  1. HUMULIN N [Suspect]
     Active Substance: INSULIN HUMAN
     Indication: DIABETES MELLITUS
     Dosage: UNK UNK, UNKNOWN
     Route: 065
  2. HUMALOG [Suspect]
     Active Substance: INSULIN LISPRO
     Indication: DIABETES MELLITUS
     Dosage: UNK UNK, UNKNOWN
     Route: 065

REACTIONS (9)
  - Blood creatinine increased [Unknown]
  - Osteoarthritis [Unknown]
  - Weight increased [Unknown]
  - Insulin resistance [Unknown]
  - Atrial fibrillation [Unknown]
  - Acute myocardial infarction [Unknown]
  - Dementia [Unknown]
  - Decreased activity [Unknown]
  - Nephropathy [Unknown]
